FAERS Safety Report 4367940-3 (Version None)
Quarter: 2004Q2

REPORT INFORMATION
  Report Type: 
  Country: None (occurrence: None)
  Receive Date: 20040601
  Receipt Date: 20040520
  Transmission Date: 20050107
  Serious: Yes (Hospitalization)
  Sender: FDA-Public Use
  Company Number: 2004034339

PATIENT
  Age: 2 Year
  Sex: Female
  Weight: 14.9687 kg

DRUGS (3)
  1. SUDAFED 12 HOUR [Suspect]
     Indication: NASOPHARYNGITIS
     Dosage: 1 TEASPOON TWICE, ORAL
     Route: 048
     Dates: start: 20040517, end: 20040517
  2. CHILDREN'S PEDIACARE LONG ACTING COUGH PLUS COLD (DEXTROMETHORPHAN, PS [Suspect]
     Indication: NASOPHARYNGITIS
     Dosage: 1/2 - 1 TSP PRN, ORAL
     Route: 048
     Dates: start: 20040501, end: 20040501
  3. ACETAMINOPHEN [Concomitant]

REACTIONS (3)
  - FALL [None]
  - FALSE POSITIVE LABORATORY RESULT [None]
  - LETHARGY [None]
